FAERS Safety Report 4299317-3 (Version None)
Quarter: 2004Q1

REPORT INFORMATION
  Report Type: 
  Country: None (occurrence: None)
  Receive Date: 20040217
  Receipt Date: 20040204
  Transmission Date: 20041129
  Serious: Yes (Other)
  Sender: FDA-Public Use
  Company Number: 204584

PATIENT

DRUGS (2)
  1. HERCEPTIN [Suspect]
  2. FLUOROURACIL [Suspect]

REACTIONS (1)
  - HAEMOLYTIC ANAEMIA [None]
